FAERS Safety Report 4787229-8 (Version None)
Quarter: 2005Q3

REPORT INFORMATION
  Report Type: 
  Country: None (occurrence: None)
  Receive Date: 20050930
  Receipt Date: 20050915
  Transmission Date: 20060218
  Serious: Yes (Other)
  Sender: FDA-Public Use
  Company Number: 2005BI007941

PATIENT
  Sex: Female

DRUGS (3)
  1. AVONEX [Suspect]
     Dosage: IM
     Route: 030
     Dates: end: 20041125
  2. AVONEX [Suspect]
     Dosage: IM
     Route: 030
     Dates: start: 19980101
  3. AVONEX [Suspect]
     Dosage: IM
     Route: 030
     Dates: start: 20050501

REACTIONS (7)
  - ANTINUCLEAR ANTIBODY POSITIVE [None]
  - DRUG EXPOSURE DURING PREGNANCY [None]
  - IDIOPATHIC THROMBOCYTOPENIC PURPURA [None]
  - POSTPARTUM DISORDER [None]
  - PRE-ECLAMPSIA [None]
  - PREGNANCY [None]
  - RHESUS ANTIBODIES POSITIVE [None]
